FAERS Safety Report 16741012 (Version 1)
Quarter: 2019Q4

REPORT INFORMATION
  Report Type: Spontaneous
  Country: US (occurrence: US)
  Receive Date: 20190826
  Receipt Date: 20190826
  Transmission Date: 20200122
  Serious: Yes (Hospitalization)
  Sender: FDA-Public Use
  Company Number: None

PATIENT
  Age: 52 Year
  Sex: Female

DRUGS (22)
  1. AZITHROMYCIN ANHYDROUS. [Concomitant]
     Active Substance: AZITHROMYCIN ANHYDROUS
  2. APAP/CODEINE [Concomitant]
     Active Substance: ACETAMINOPHEN\CODEINE PHOSPHATE
  3. BENZONATE [Concomitant]
     Active Substance: BENZONATATE
  4. DESVENLAFAX [Concomitant]
  5. ALINIA [Concomitant]
     Active Substance: NITAZOXANIDE
  6. BUT/APAP/CAF [Concomitant]
  7. VENTOLIN HFA [Concomitant]
     Active Substance: ALBUTEROL SULFATE
  8. METRONIDAZOLE. [Concomitant]
     Active Substance: METRONIDAZOLE
  9. PREDNISONE. [Concomitant]
     Active Substance: PREDNISONE
  10. FLUCONAZOLE. [Concomitant]
     Active Substance: FLUCONAZOLE
  11. HYDROXYZ PAM [Concomitant]
     Active Substance: HYDROXYZINE PAMOATE
  12. HUMIRA [Suspect]
     Active Substance: ADALIMUMAB
     Indication: CROHN^S DISEASE
     Dosage: ?          OTHER FREQUENCY:EVERY 2 WEEKS;?
     Route: 058
     Dates: start: 20190403
  13. QUETIAPINE. [Concomitant]
     Active Substance: QUETIAPINE
  14. LORAZEPAM. [Concomitant]
     Active Substance: LORAZEPAM
  15. AZATHIOPRINE. [Concomitant]
     Active Substance: AZATHIOPRINE
  16. VENLAFAXINE [Concomitant]
     Active Substance: VENLAFAXINE HYDROCHLORIDE
  17. CIPROFLOXACIN. [Concomitant]
     Active Substance: CIPROFLOXACIN
  18. CEFUROXIME. [Concomitant]
     Active Substance: CEFUROXIME
  19. ADVAIR HFA [Concomitant]
     Active Substance: FLUTICASONE PROPIONATE\SALMETEROL XINAFOATE
  20. METHOCARBAM [Concomitant]
     Active Substance: METHOCARBAMOL
  21. PROMETH/COD [Concomitant]
  22. SYMBICORT [Concomitant]
     Active Substance: BUDESONIDE\FORMOTEROL FUMARATE DIHYDRATE

REACTIONS (2)
  - Condition aggravated [None]
  - Infection [None]

NARRATIVE: CASE EVENT DATE: 20190820
